FAERS Safety Report 16641515 (Version 1)
Quarter: 2019Q3

REPORT INFORMATION
  Report Type: Report from Study
  Country: None (occurrence: US)
  Receive Date: 20190729
  Receipt Date: 20190729
  Transmission Date: 20191004
  Serious: Yes (Hospitalization, Other)
  Sender: FDA-Public Use
  Company Number: US-ABBVIE-19K-163-2862230-00

PATIENT
  Age: 60 Year
  Sex: Female
  Weight: 79 kg

DRUGS (1)
  1. HUMIRA [Suspect]
     Active Substance: ADALIMUMAB
     Indication: COLITIS ULCERATIVE
     Route: 058
     Dates: start: 20170530, end: 20190606

REACTIONS (7)
  - Skin exfoliation [Unknown]
  - Umbilical hernia [Recovered/Resolved]
  - Necrotising fasciitis [Recovering/Resolving]
  - Skin laceration [Recovering/Resolving]
  - Localised infection [Unknown]
  - Chills [Recovered/Resolved]
  - Skin fissures [Unknown]

NARRATIVE: CASE EVENT DATE: 20180606
